FAERS Safety Report 14497952 (Version 1)
Quarter: 2018Q1

REPORT INFORMATION
  Report Type: Spontaneous
  Country: US (occurrence: US)
  Receive Date: 20180206
  Receipt Date: 20180206
  Transmission Date: 20180509
  Serious: Yes (Other)
  Sender: FDA-Public Use
  Company Number: None

PATIENT
  Age: 49 Year
  Sex: Female
  Weight: 96.75 kg

DRUGS (9)
  1. METFORMIN [Concomitant]
     Active Substance: METFORMIN HYDROCHLORIDE
  2. AMLODIPINE [Concomitant]
     Active Substance: AMLODIPINE BESYLATE
  3. LISINOPRIL/HCTZ [Concomitant]
     Active Substance: HYDROCHLOROTHIAZIDE\LISINOPRIL
  4. ATORVASTATIN [Concomitant]
     Active Substance: ATORVASTATIN
  5. FENOFIBRATE. [Concomitant]
     Active Substance: FENOFIBRATE
  6. IBUPROFEN. [Concomitant]
     Active Substance: IBUPROFEN
  7. TRAMADOL. [Concomitant]
     Active Substance: TRAMADOL
  8. CYMBALTA [Suspect]
     Active Substance: DULOXETINE HYDROCHLORIDE
     Indication: OSTEOARTHRITIS
     Dosage: QUANTITY:2 CAPSULE(S); AT BEDTIME?
     Route: 048
  9. LISINOPRIL. [Concomitant]
     Active Substance: LISINOPRIL

REACTIONS (8)
  - Abdominal pain [None]
  - Hypoaesthesia [None]
  - Muscle twitching [None]
  - Nausea [None]
  - Tremor [None]
  - Dyskinesia [None]
  - Headache [None]
  - Abdominal distension [None]

NARRATIVE: CASE EVENT DATE: 20180131
